FAERS Safety Report 11651153 (Version 2)
Quarter: 2015Q4

REPORT INFORMATION
  Report Type: Spontaneous
  Country: US (occurrence: US)
  Receive Date: 20151021
  Receipt Date: 20151022
  Transmission Date: 20160304
  Serious: No
  Sender: FDA-Public Use
  Company Number: US-PURDUE-USA-2015-0124492

PATIENT
  Sex: Female

DRUGS (3)
  1. NORCO [Concomitant]
     Active Substance: ACETAMINOPHEN\HYDROCODONE BITARTRATE
     Indication: BREAKTHROUGH PAIN
     Dosage: 1 TABLET, UNK
     Route: 048
     Dates: start: 2009
  2. OXYCODONE HCL IR CAPSULES [Suspect]
     Active Substance: OXYCODONE HYDROCHLORIDE
     Indication: PAIN
     Dosage: 20 MG, UNK
     Route: 048
     Dates: start: 2010
  3. DIGOXIN. [Concomitant]
     Active Substance: DIGOXIN
     Indication: TACHYCARDIA
     Dosage: UNK MG, UNK
     Route: 065

REACTIONS (8)
  - Diabetes mellitus [Unknown]
  - Developmental hip dysplasia [Unknown]
  - Fatigue [Unknown]
  - Drug ineffective [Unknown]
  - Insomnia [Unknown]
  - Eye swelling [Unknown]
  - Gastric ulcer [Unknown]
  - Tachycardia [Unknown]

NARRATIVE: CASE EVENT DATE: 2010
